FAERS Safety Report 11630110 (Version 1)
Quarter: 2015Q4

REPORT INFORMATION
  Report Type: Spontaneous
  Country: GB (occurrence: GB)
  Receive Date: 20151014
  Receipt Date: 20151014
  Transmission Date: 20160304
  Serious: Yes (Hospitalization)
  Sender: FDA-Public Use
  Company Number: GB-JNJFOC-20151009377

PATIENT
  Age: 55 Year
  Sex: Female
  Weight: 61.4 kg

DRUGS (5)
  1. CITALOPRAM [Concomitant]
     Active Substance: CITALOPRAM HYDROBROMIDE
     Dosage: NOT TAKEN ON A REGULAR BASIS
     Route: 065
  2. CODEINE [Concomitant]
     Active Substance: CODEINE
     Route: 065
  3. OMEPRAZOLE. [Concomitant]
     Active Substance: OMEPRAZOLE
     Dosage: NOT TAKEN ON REGULAR BASIS
     Route: 065
  4. ITRACONAZOLE. [Suspect]
     Active Substance: ITRACONAZOLE
     Indication: TINEA PEDIS
     Dosage: 8 DOSES OF A 2-WEEK COURSE TAKEN IN TOTAL??100.0 (UNITS UNSPECIFIED)
     Route: 048
     Dates: start: 20150911, end: 20150918
  5. PARACETAMOL [Concomitant]
     Active Substance: ACETAMINOPHEN
     Route: 065

REACTIONS (4)
  - Abdominal pain [Not Recovered/Not Resolved]
  - Malaise [Not Recovered/Not Resolved]
  - Liver function test abnormal [Not Recovered/Not Resolved]
  - Back pain [Not Recovered/Not Resolved]

NARRATIVE: CASE EVENT DATE: 20151001
